FAERS Safety Report 11838906 (Version 2)
Quarter: 2015Q4

REPORT INFORMATION
  Report Type: Spontaneous
  Country: US (occurrence: US)
  Receive Date: 20151216
  Receipt Date: 20151216
  Transmission Date: 20160305
  Serious: Yes (Hospitalization, Other)
  Sender: FDA-Public Use
  Company Number: US-ABBVIE-15K-163-1516720-00

PATIENT
  Age: 56 Year
  Sex: Male
  Weight: 77.18 kg

DRUGS (1)
  1. HUMIRA [Suspect]
     Active Substance: ADALIMUMAB
     Indication: PSORIATIC ARTHROPATHY
     Route: 058
     Dates: end: 201508

REACTIONS (7)
  - Musculoskeletal stiffness [Not Recovered/Not Resolved]
  - Renal cell carcinoma [Recovered/Resolved]
  - Urine flow decreased [Recovering/Resolving]
  - Abdominal pain upper [Recovered/Resolved]
  - Nocturia [Recovering/Resolving]
  - Joint stiffness [Not Recovered/Not Resolved]
  - Gastrointestinal neoplasm [Recovered/Resolved]

NARRATIVE: CASE EVENT DATE: 2015
